FAERS Safety Report 25952862 (Version 1)
Quarter: 2025Q4

REPORT INFORMATION
  Report Type: Spontaneous
  Country: US (occurrence: US)
  Receive Date: 20251023
  Receipt Date: 20251023
  Transmission Date: 20260117
  Serious: Yes (Other)
  Sender: BAYER HEALTHCARE LLC
  Company Number: US-BAYER-2025A139421

PATIENT
  Age: 50 Year
  Sex: Female

DRUGS (4)
  1. ASPIRIN [Suspect]
     Active Substance: ASPIRIN
     Indication: Antiplatelet therapy
     Dosage: 81 MG
  2. ASPIRIN [Suspect]
     Active Substance: ASPIRIN
     Indication: Preoperative care
     Dosage: 325 MG
  3. CLOPIDOGREL [Suspect]
     Active Substance: CLOPIDOGREL BISULFATE
     Dosage: 300 MG LOADING DOSE
  4. CLOPIDOGREL [Suspect]
     Active Substance: CLOPIDOGREL BISULFATE
     Dosage: 75 MG, QD

REACTIONS (2)
  - Haematoma [None]
  - Treatment noncompliance [None]
